FAERS Safety Report 5477731-8 (Version None)
Quarter: 2007Q4

REPORT INFORMATION
  Report Type: 
  Country: None (occurrence: None)
  Receive Date: 20071002
  Receipt Date: 20070919
  Transmission Date: 20080405
  Serious: Yes (Other)
  Sender: FDA-Public Use
  Company Number: GXKR2007BR08230

PATIENT
  Age: 60 Year
  Sex: Female
  Weight: 74 kg

DRUGS (12)
  1. ATENOLOL [Suspect]
     Indication: HYPERTENSION
     Dosage: 50 MG, BID, ORAL
     Route: 048
     Dates: start: 20070501, end: 20070919
  2. DIURETICS         (NO INGREDIENTS/SUBSTANCES) [Concomitant]
  3. SERTRALINE [Concomitant]
  4. MEMATINE HYDROCHLORIDE        (MEMANTINE HYDROCHLORIDE) [Concomitant]
  5. CLONAZEPAM [Concomitant]
  6. OMEPRAZOLE [Concomitant]
  7. DEFLAZACORT       (DEFLAZACORT) [Concomitant]
  8. MELOXICAM [Concomitant]
  9. RANITIDINE [Concomitant]
  10. GLUCOSAMINE SULFATE POTASSIUM CHLORIDE [Concomitant]
  11. CALCIUM WITH VITAMIN D (CALCIUM PHOSPHATE, CALCIUM SODIUM LACTATE, ERG [Concomitant]
  12. BENERVA           (THIAMINE HYDROCHLORIDE) [Concomitant]

REACTIONS (4)
  - DYSPNOEA [None]
  - EMPHYSEMA [None]
  - FATIGUE [None]
  - RHINITIS [None]
